FAERS Safety Report 5364026-6 (Version None)
Quarter: 2007Q2

REPORT INFORMATION
  Report Type: 
  Country: None (occurrence: None)
  Receive Date: 20070620
  Receipt Date: 20070608
  Transmission Date: 20071010
  Serious: Yes (Other)
  Sender: FDA-Public Use
  Company Number: US-PFIZER INC-2007022641

PATIENT
  Sex: Female
  Weight: 79.4 kg

DRUGS (1)
  1. CHANTIX [Suspect]
     Indication: SMOKING CESSATION THERAPY
     Route: 048
     Dates: start: 20070307, end: 20070317

REACTIONS (6)
  - ABASIA [None]
  - DIZZINESS [None]
  - NAUSEA [None]
  - PYREXIA [None]
  - VERTIGO [None]
  - VOMITING [None]
